FAERS Safety Report 6652901-1 (Version None)
Quarter: 2010Q1

REPORT INFORMATION
  Report Type: 
  Country: None (occurrence: None)
  Receive Date: 20100326
  Receipt Date: 20100319
  Transmission Date: 20100710
  Serious: Yes (Other)
  Sender: FDA-Public Use
  Company Number: US-SANOFI-AVENTIS-2010SA007832

PATIENT
  Age: 44 Year
  Sex: Male

DRUGS (7)
  1. SOLOSTAR [Suspect]
     Dates: start: 20050101
  2. LANTUS [Suspect]
     Dosage: DOSE:64 UNIT(S)
     Route: 058
     Dates: start: 20050101
  3. HUMALOG [Concomitant]
  4. LISINOPRIL [Concomitant]
  5. COREG [Concomitant]
  6. ASPIRIN [Concomitant]
  7. CRESTOR [Concomitant]

REACTIONS (7)
  - BLOOD GLUCOSE DECREASED [None]
  - BLOOD GLUCOSE INCREASED [None]
  - CATARACT [None]
  - CORONARY ARTERY BYPASS [None]
  - GLYCOSYLATED HAEMOGLOBIN INCREASED [None]
  - OVERDOSE [None]
  - PRODUCT QUALITY ISSUE [None]
